FAERS Safety Report 7921662-8 (Version None)
Quarter: 2011Q4

REPORT INFORMATION
  Report Type: 
  Country: None (occurrence: None)
  Receive Date: 20111117
  Receipt Date: 20111114
  Transmission Date: 20120403
  Serious: Yes (Death, Hospitalization)
  Sender: FDA-Public Use
  Company Number: US-GLAXOSMITHKLINE-A0776708A

PATIENT
  Age: 60 Year
  Sex: Male
  Weight: 137.7 kg

DRUGS (10)
  1. ROCALTROL [Concomitant]
  2. AVANDIA [Suspect]
     Indication: DIABETES MELLITUS
     Dosage: 8MG PER DAY
     Route: 048
     Dates: start: 20030515, end: 20060210
  3. MYCOPHENOLATE MOFETIL (CELLCEPT) [Concomitant]
  4. NEORAL [Concomitant]
  5. ALTACE [Concomitant]
  6. GLUCOTROL [Concomitant]
  7. PREDNISONE TAB [Concomitant]
  8. ASPIRIN [Concomitant]
  9. LIPITOR [Concomitant]
  10. PRILOSEC [Concomitant]

REACTIONS (6)
  - ATRIAL FIBRILLATION [None]
  - MYOCARDIAL INFARCTION [None]
  - CARDIAC FAILURE CONGESTIVE [None]
  - WEIGHT INCREASED [None]
  - CEREBROVASCULAR ACCIDENT [None]
  - DEATH [None]
